FAERS Safety Report 4322059-2 (Version None)
Quarter: 2004Q1

REPORT INFORMATION
  Report Type: 
  Country: None (occurrence: None)
  Receive Date: 20040319
  Receipt Date: 20040309
  Transmission Date: 20041129
  Serious: Yes (Hospitalization)
  Sender: FDA-Public Use
  Company Number: US-JNJFOC-20040301835

PATIENT
  Age: 54 Year
  Sex: Female

DRUGS (5)
  1. DITROPAN XL [Suspect]
     Indication: URINARY INCONTINENCE
     Dosage: 15 MG, ORAL;  10 MG, 1 IN 1 DAY, ORAL
     Route: 048
  2. DARVOCET [Suspect]
     Indication: DRUG USE FOR UNKNOWN INDICATION
  3. NORVASC [Concomitant]
  4. HYZAAR [Concomitant]
  5. CELEXA [Concomitant]

REACTIONS (3)
  - CONSTIPATION [None]
  - DRUG INTERACTION [None]
  - URINARY INCONTINENCE [None]
